FAERS Safety Report 7008293-1 (Version None)
Quarter: 2010Q3

REPORT INFORMATION
  Report Type: 
  Country: None (occurrence: None)
  Receive Date: 20100922
  Receipt Date: 20100917
  Transmission Date: 20110219
  Serious: Yes (Hospitalization)
  Sender: FDA-Public Use
  Company Number: A0833421A

PATIENT
  Sex: Male

DRUGS (11)
  1. AVANDIA [Suspect]
     Indication: DIABETES MELLITUS
     Dosage: 4MG PER DAY
     Route: 048
     Dates: start: 20000101, end: 20080402
  2. ACCUPRIL [Concomitant]
  3. GLIPIZIDE [Concomitant]
  4. CARTIA XT [Concomitant]
  5. RANITIDINE [Concomitant]
  6. MINITRAN [Concomitant]
  7. XANAX [Concomitant]
  8. METFORMIN [Concomitant]
  9. LIPITOR [Concomitant]
  10. METOPROLOL TARTRATE [Concomitant]
  11. TRICOR [Concomitant]

REACTIONS (6)
  - CARDIAC FAILURE CONGESTIVE [None]
  - CARDIOVASCULAR DISORDER [None]
  - CORONARY ARTERY DISEASE [None]
  - DEEP VEIN THROMBOSIS [None]
  - INTRACARDIAC THROMBUS [None]
  - MYOCARDIAL INFARCTION [None]
